FAERS Safety Report 19203612 (Version 4)
Quarter: 2021Q4

REPORT INFORMATION
  Report Type: Report from Study
  Country: US (occurrence: US)
  Receive Date: 20210430
  Receipt Date: 20211018
  Transmission Date: 20220303
  Serious: Yes (Other)
  Sender: FDA-Public Use
  Company Number: US-TAKEDA-US201934697

PATIENT
  Sex: Female

DRUGS (1)
  1. HUMAN IMMUNOGLOBULIN G\HYALURONIDASE RECOMBINANT HUMAN [Suspect]
     Active Substance: HUMAN IMMUNOGLOBULIN G\HYALURONIDASE RECOMBINANT HUMAN
     Indication: Primary immunodeficiency syndrome
     Dosage: 40 GRAM, Q4WEEKS
     Route: 065

REACTIONS (8)
  - Systemic lupus erythematosus [Unknown]
  - Pulmonary congestion [Unknown]
  - Herpes zoster [Unknown]
  - Arthropod bite [Unknown]
  - Arthritis [Unknown]
  - Allergy to arthropod bite [Unknown]
  - Back pain [Unknown]
  - Headache [Unknown]
